FAERS Safety Report 10170260 (Version 1)
Quarter: 2014Q2

REPORT INFORMATION
  Report Type: Spontaneous
  Country: AT (occurrence: AT)
  Receive Date: 20140513
  Receipt Date: 20140513
  Transmission Date: 20141212
  Serious: Yes (Other)
  Sender: FDA-Public Use
  Company Number: AT-ACTAVIS-2014-09984

PATIENT
  Age: 33 Year
  Sex: Female

DRUGS (6)
  1. QUETIAPINE (UNKNOWN) [Suspect]
     Indication: BORDERLINE PERSONALITY DISORDER
     Dosage: 75 MG, QHS
     Route: 065
  2. QUETIAPINE (UNKNOWN) [Suspect]
     Dosage: 50 MG, QHS
     Route: 065
  3. DULOXETINE [Concomitant]
     Indication: BORDERLINE PERSONALITY DISORDER
     Dosage: 90 MG, QAM
     Route: 065
  4. VALPROATE [Concomitant]
     Indication: PRODUCT USED FOR UNKNOWN INDICATION
     Dosage: 500 MG, BID
     Route: 065
  5. VALPROATE [Concomitant]
     Dosage: 300 UNK, UNK
     Route: 065
  6. OXAZEPAM [Concomitant]
     Indication: PRODUCT USED FOR UNKNOWN INDICATION
     Dosage: 15 MG, BID
     Route: 065

REACTIONS (1)
  - Restless legs syndrome [Recovered/Resolved]
